FAERS Safety Report 20029755 (Version 2)
Quarter: 2021Q4

REPORT INFORMATION
  Report Type: Report from Study
  Country: US (occurrence: US)
  Receive Date: 20211103
  Receipt Date: 20211115
  Transmission Date: 20220303
  Serious: Yes (Hospitalization)
  Sender: FDA-Public Use
  Company Number: US-EXELIXIS-CABO-21045330

PATIENT
  Age: 86 Year
  Sex: Female

DRUGS (1)
  1. CABOMETYX [Suspect]
     Active Substance: CABOZANTINIB S-MALATE
     Indication: Renal cell carcinoma
     Dosage: 60 MG, QD
     Route: 048
     Dates: start: 20211014

REACTIONS (3)
  - Feeling abnormal [Unknown]
  - Intestinal obstruction [Unknown]
  - Dizziness [Unknown]

NARRATIVE: CASE EVENT DATE: 20211001
